FAERS Safety Report 4667008-2 (Version None)
Quarter: 2005Q2

REPORT INFORMATION
  Report Type: 
  Country: None (occurrence: None)
  Receive Date: 20050520
  Receipt Date: 20040517
  Transmission Date: 20051028
  Serious: Yes (Other)
  Sender: FDA-Public Use
  Company Number: PHEH2004US05474

PATIENT
  Age: 48 Year
  Sex: Female

DRUGS (4)
  1. AREDIA [Suspect]
     Indication: METASTASES TO BONE
     Dosage: 90 MG, QMO
     Dates: start: 19980801, end: 20040325
  2. LUPRON [Concomitant]
     Dosage: 75 MG, QMO
     Dates: start: 19990929, end: 20000819
  3. SAMARIUM [153 SM] LEXIDRONAM PENTASODIUM [Concomitant]
     Dates: start: 20030225, end: 20040225
  4. FEMARA [Concomitant]
     Dosage: 2.5 MG, QD
     Dates: start: 19990929

REACTIONS (5)
  - JAW DISORDER [None]
  - JAW OPERATION [None]
  - OSTEOMYELITIS ACUTE [None]
  - OSTEONECROSIS [None]
  - TOOTH EXTRACTION [None]
